FAERS Safety Report 8131490-9 (Version None)
Quarter: 2012Q1

REPORT INFORMATION
  Report Type: 
  Country: None (occurrence: None)
  Receive Date: 20120213
  Receipt Date: 20120203
  Transmission Date: 20120608
  Serious: Yes (Other)
  Sender: FDA-Public Use
  Company Number: BE-JNJFOC-20120203332

PATIENT
  Age: 76 Year
  Sex: Male

DRUGS (1)
  1. XARELTO [Suspect]
     Indication: ATRIAL FIBRILLATION
     Route: 065

REACTIONS (3)
  - INFLAMMATION [None]
  - ARTHRALGIA [None]
  - TENDON DISORDER [None]
